FAERS Safety Report 21735921 (Version 2)
Quarter: 2023Q1

REPORT INFORMATION
  Report Type: Report from Study
  Country: CA (occurrence: CA)
  Receive Date: 20221215
  Receipt Date: 20230210
  Transmission Date: 20230417
  Serious: Yes (Death, Hospitalization, Other)
  Sender: FDA-Public Use
  Company Number: CA-HLS-202202264

PATIENT
  Age: 75 Year
  Sex: Female

DRUGS (1)
  1. CLOZARIL [Suspect]
     Active Substance: CLOZAPINE
     Indication: Product used for unknown indication
     Dosage: 275 MG AT BEDTIME
     Route: 048
     Dates: start: 20040217

REACTIONS (13)
  - Apathy [Unknown]
  - Cachexia [Unknown]
  - Pain [Unknown]
  - Cognitive disorder [Unknown]
  - Asthenia [Fatal]
  - Fall [Unknown]
  - Multiple fractures [Unknown]
  - Mental disorder [Unknown]
  - Decreased appetite [Unknown]
  - Osteomyelitis [Unknown]
  - Decubitus ulcer [Unknown]
  - Dysphagia [Unknown]
  - Weight decreased [Unknown]

NARRATIVE: CASE EVENT DATE: 20220708
